FAERS Safety Report 5310038-8 (Version None)
Quarter: 2007Q2

REPORT INFORMATION
  Report Type: 
  Country: None (occurrence: None)
  Receive Date: 20070427
  Receipt Date: 20070427
  Transmission Date: 20071010
  Serious: Yes (Other)
  Sender: FDA-Public Use
  Company Number: GB-GLAXOSMITHKLINE-B0441184A

PATIENT
  Age: 37 Year
  Sex: Female
  Weight: 55 kg

DRUGS (4)
  1. ZIDOVUDINE [Suspect]
     Indication: HIV INFECTION
     Dosage: 500MG UNKNOWN
     Route: 048
     Dates: start: 20050301
  2. ATAZANAVIR SULFATE [Suspect]
     Indication: HIV INFECTION
     Dosage: 400MG UNKNOWN
     Route: 048
     Dates: start: 20050301
  3. DIDANOSINE [Suspect]
     Indication: HIV INFECTION
     Dosage: 100MG UNKNOWN
     Route: 048
     Dates: start: 20050301
  4. RITONAVIR [Suspect]
     Indication: HIV INFECTION
     Dosage: 100MG UNKNOWN
     Route: 048
     Dates: start: 20060301

REACTIONS (4)
  - DRUG EXPOSURE DURING PREGNANCY [None]
  - INTRA-UTERINE DEATH [None]
  - PLACENTAL INSUFFICIENCY [None]
  - STILLBIRTH [None]
